FAERS Safety Report 21386798 (Version 1)
Quarter: 2022Q3

REPORT INFORMATION
  Report Type: Spontaneous
  Country: US (occurrence: None)
  Receive Date: 20220926
  Receipt Date: 20220926
  Transmission Date: 20221026
  Serious: Yes (Other)
  Sender: FDA-Public Use
  Company Number: None

PATIENT
  Sex: Female

DRUGS (3)
  1. HUMIRA [Suspect]
     Active Substance: ADALIMUMAB
     Indication: Crohn^s disease
     Dosage: 40 MG/0.4ML ?INJECT 1 PEN UNDER THE SKIN (SUBCUTANEOUS INJECTION) EVERY 2 WEEKS IN THE ABDOMEN OR TH
     Route: 058
     Dates: start: 20220512
  2. PROMACTA [Concomitant]
  3. ZYRTEC [Concomitant]

REACTIONS (2)
  - Surgery [None]
  - Crohn^s disease [None]
